FAERS Safety Report 5034091-4 (Version None)
Quarter: 2006Q2

REPORT INFORMATION
  Report Type: 
  Country: None (occurrence: None)
  Receive Date: 20060621
  Receipt Date: 20060315
  Transmission Date: 20061013
  Serious: No
  Sender: FDA-Public Use
  Company Number: C06-031

PATIENT
  Sex: Male

DRUGS (2)
  1. QUINARETIC [Suspect]
  2. QUINARETIC [Suspect]

REACTIONS (1)
  - INTERCEPTED DRUG DISPENSING ERROR [None]
